FAERS Safety Report 5331511-2 (Version None)
Quarter: 2007Q2

REPORT INFORMATION
  Report Type: 
  Country: None (occurrence: None)
  Receive Date: 20070522
  Receipt Date: 20070510
  Transmission Date: 20071010
  Serious: Yes (Hospitalization)
  Sender: FDA-Public Use
  Company Number: JP-PFIZER INC-2007013459

PATIENT
  Sex: Female

DRUGS (2)
  1. LIPITOR [Suspect]
     Indication: HYPERLIPIDAEMIA
     Dosage: DAILY DOSE:10MG
     Route: 048
     Dates: start: 20060817, end: 20061110
  2. URINORM [Suspect]
     Indication: HYPERURICAEMIA
     Dates: start: 20060817, end: 20061110

REACTIONS (2)
  - ALDOLASE [None]
  - POLYMYOSITIS [None]
